FAERS Safety Report 24277346 (Version 6)
Quarter: 2024Q4

REPORT INFORMATION
  Report Type: Report from Study
  Country: JP (occurrence: JP)
  Receive Date: 20240903
  Receipt Date: 20241231
  Transmission Date: 20250114
  Serious: Yes (Hospitalization, Other)
  Sender: PFIZER
  Company Number: JP-PFIZER INC-PV202400090339

PATIENT
  Age: 78 Year
  Sex: Male
  Weight: 56 kg

DRUGS (9)
  1. ELRANATAMAB [Suspect]
     Active Substance: ELRANATAMAB
     Indication: Plasma cell myeloma
     Dosage: 12 MG, SINGLE
     Route: 058
     Dates: start: 20240701, end: 20240701
  2. ELRANATAMAB [Suspect]
     Active Substance: ELRANATAMAB
     Dosage: 32 MG, SINGLE
     Route: 058
     Dates: start: 20240704, end: 20240704
  3. ELRANATAMAB [Suspect]
     Active Substance: ELRANATAMAB
     Dosage: 76 MG, SINGLE
     Route: 058
     Dates: start: 20240711, end: 20240711
  4. ELRANATAMAB [Suspect]
     Active Substance: ELRANATAMAB
     Dosage: 76 MG, SINGLE
     Route: 058
     Dates: start: 20240718, end: 20240718
  5. ELRANATAMAB [Suspect]
     Active Substance: ELRANATAMAB
     Dosage: 76 MG, SINGLE
     Route: 058
     Dates: start: 20240725, end: 20240725
  6. ELRANATAMAB [Suspect]
     Active Substance: ELRANATAMAB
     Dosage: 76 MG, SINGLE
     Route: 058
     Dates: start: 20240731, end: 20240731
  7. ACETAMINOPHEN [Concomitant]
     Active Substance: ACETAMINOPHEN
     Indication: Premedication
     Dosage: UNK
  8. LENADEX [Concomitant]
     Active Substance: DEXAMETHASONE ACETATE
     Indication: Premedication
     Dosage: UNK
  9. SULFAMETHOXAZOLE\TRIMETHOPRIM [Concomitant]
     Active Substance: SULFAMETHOXAZOLE\TRIMETHOPRIM
     Indication: Prophylaxis
     Dosage: UNK
     Route: 048
     Dates: start: 20240628

REACTIONS (9)
  - C-reactive protein increased [Recovering/Resolving]
  - Pneumonia [Recovered/Resolved]
  - Cytokine release syndrome [Recovered/Resolved]
  - Alanine aminotransferase increased [Recovering/Resolving]
  - Platelet count decreased [Not Recovered/Not Resolved]
  - Aspartate aminotransferase increased [Recovering/Resolving]
  - White blood cell count decreased [Unknown]
  - Pyrexia [Unknown]
  - Neoplasm progression [Unknown]

NARRATIVE: CASE EVENT DATE: 20240706
